FAERS Safety Report 10039026 (Version 1)
Quarter: 2014Q1

REPORT INFORMATION
  Report Type: Spontaneous
  Country: US (occurrence: None)
  Receive Date: 20140306
  Receipt Date: 20140306
  Transmission Date: 20141002
  Serious: Yes (Hospitalization)
  Sender: FDA-Public Use
  Company Number: 163-21880-13061468

PATIENT
  Age: 76 Year
  Sex: Female

DRUGS (9)
  1. REVLIMID (LENALIDOMIDE) (10 MILLIGRAM, CAPSULES) [Suspect]
     Indication: 5Q MINUS SYNDROME
     Dosage: 10MG, 28 IN 28 D, PO
     Route: 048
     Dates: start: 20130129
  2. CYCLOBENZAPRINE (CYCLOBENZAPRINE) [Concomitant]
  3. DIAZEPAM (DIAZEPAM) [Concomitant]
  4. LORAZEPAM (LORAZEPAM) [Concomitant]
  5. LABETALOL (LABETALOL) [Concomitant]
  6. MINOXIDIL (MINOXIDIL) [Concomitant]
  7. NIFEDIPINE (NIFEDIPINE) [Concomitant]
  8. RENAGEL (SEVELAMER HYDROCHLORIDE) [Concomitant]
  9. RENO CAPS (NEPHROCAPS) [Concomitant]

REACTIONS (1)
  - Dyspnoea [None]
